FAERS Safety Report 23300278 (Version 1)
Quarter: 2023Q4

REPORT INFORMATION
  Report Type: Spontaneous
  Country: US (occurrence: US)
  Receive Date: 20231215
  Receipt Date: 20231215
  Transmission Date: 20240110
  Serious: Yes (Other)
  Sender: FDA-Public Use
  Company Number: US-SANDOZ-SDZ2023US067248

PATIENT
  Sex: Female

DRUGS (1)
  1. ALBUTEROL SULFATE [Suspect]
     Active Substance: ALBUTEROL SULFATE
     Indication: Product used for unknown indication
     Dosage: UNK
     Route: 065

REACTIONS (7)
  - Respiratory distress [Unknown]
  - Chest discomfort [Unknown]
  - Wheezing [Unknown]
  - Product dose omission issue [Unknown]
  - Device ineffective [Unknown]
  - Device delivery system issue [Unknown]
  - Device information output issue [Unknown]
